FAERS Safety Report 7610936-6 (Version None)
Quarter: 2011Q3

REPORT INFORMATION
  Report Type: 
  Country: None (occurrence: None)
  Receive Date: 20110715
  Receipt Date: 20110704
  Transmission Date: 20111222
  Serious: Yes (Hospitalization)
  Sender: FDA-Public Use
  Company Number: PHHY2011JP49594

PATIENT
  Age: 64 Year
  Sex: Male
  Weight: 49 kg

DRUGS (15)
  1. TOPOTECAN [Concomitant]
     Dosage: UNK UKN, UNK
  2. LENDORMIN [Concomitant]
     Dosage: UNK UKN, UNK
  3. PROMAC [Concomitant]
     Dosage: UNK UKN, UNK
  4. ERBITUX [Concomitant]
     Dosage: UNK UKN, UNK
  5. LOXONIN [Concomitant]
     Dosage: UNK UKN, UNK
  6. ISODINE [Concomitant]
     Dosage: UNK UKN, UNK
  7. LANSOPRAZOLE [Concomitant]
     Dosage: UNK UKN, UNK
  8. LYRICA [Suspect]
     Indication: PAIN
     Dosage: 150 MG, DAILY
     Route: 048
     Dates: start: 20110517, end: 20110608
  9. ALOSENN [Concomitant]
     Dosage: UNK UKN, UNK
  10. ZOMETA [Suspect]
     Indication: METASTASES TO BONE
     Dosage: 4 MG, UNK
     Dates: start: 20110519, end: 20110519
  11. HACHIAZULE [Concomitant]
     Dosage: UNK UKN, UNK
  12. BETAMETHASONE [Concomitant]
     Dosage: UNK UKN, UNK
  13. ACETAMINOPHEN [Concomitant]
     Dosage: UNK UKN, UNK
  14. PURSENNID [Concomitant]
     Dosage: UNK UKN, UNK
  15. ALLOPURINOL [Concomitant]
     Dosage: UNK UKN, UNK

REACTIONS (5)
  - ASPARTATE AMINOTRANSFERASE INCREASED [None]
  - ALANINE AMINOTRANSFERASE INCREASED [None]
  - HYPERKALAEMIA [None]
  - BONE PAIN [None]
  - HEPATIC FUNCTION ABNORMAL [None]
